FAERS Safety Report 7086224-6 (Version None)
Quarter: 2010Q4

REPORT INFORMATION
  Report Type: 
  Country: None (occurrence: None)
  Receive Date: 20101105
  Receipt Date: 20101029
  Transmission Date: 20110411
  Serious: Yes (Other)
  Sender: FDA-Public Use
  Company Number: US-AMGEN-USASP2010002391

PATIENT

DRUGS (1)
  1. ENBREL [Suspect]
     Indication: RHEUMATOID ARTHRITIS
     Dates: start: 20050502

REACTIONS (4)
  - ARTHROPOD STING [None]
  - INJECTION SITE PAIN [None]
  - SWELLING FACE [None]
  - SWOLLEN TONGUE [None]
